FAERS Safety Report 22987449 (Version 2)
Quarter: 2023Q4

REPORT INFORMATION
  Report Type: Report from Study
  Country: CA (occurrence: CA)
  Receive Date: 20230926
  Receipt Date: 20231004
  Transmission Date: 20240110
  Serious: Yes (Death, Other)
  Sender: FDA-Public Use
  Company Number: CA-JAZZ PHARMACEUTICALS-2023-CA-019902

PATIENT
  Sex: Male

DRUGS (3)
  1. LURBINECTEDIN [Suspect]
     Active Substance: LURBINECTEDIN
     Indication: Small cell lung cancer metastatic
     Dosage: UNK
     Dates: start: 20230223
  2. LURBINECTEDIN [Suspect]
     Active Substance: LURBINECTEDIN
     Dosage: UNK
     Dates: start: 20230316
  3. LURBINECTEDIN [Suspect]
     Active Substance: LURBINECTEDIN
     Dosage: UNK
     Dates: start: 20230406

REACTIONS (1)
  - Small cell lung cancer metastatic [Fatal]
